FAERS Safety Report 5243709-2 (Version None)
Quarter: 2007Q1

REPORT INFORMATION
  Report Type: 
  Country: None (occurrence: None)
  Receive Date: 20070220
  Receipt Date: 20070220
  Transmission Date: 20070707
  Serious: Yes (Life-Threatening)
  Sender: FDA-Public Use
  Company Number: None

PATIENT
  Age: 72 Year
  Sex: Female
  Weight: 40 kg

DRUGS (16)
  1. TEMOZOLOMIDE  75 MG/M2 [Suspect]
     Indication: GLIOBLASTOMA
     Dosage: 105 MG PO QD
     Route: 048
     Dates: start: 20061226, end: 20070207
  2. PTK787/222584 [Suspect]
     Dosage: 250 MG  PO  QD
     Route: 048
     Dates: start: 20061220, end: 20070207
  3. ATENOLOL [Concomitant]
  4. BACTRIM DS [Concomitant]
  5. CITALOPRAM HYDROBROMIDE [Concomitant]
  6. DECADRON [Concomitant]
  7. DENAVIR CREAM [Concomitant]
  8. DULCOLAX [Concomitant]
  9. LACTULOSE [Concomitant]
  10. MEGACE [Concomitant]
  11. MYCELEX TROUCHES [Concomitant]
  12. NEXIUM [Concomitant]
  13. SENOKOT [Concomitant]
  14. TRILEPTAL [Concomitant]
  15. ZOFRAN [Concomitant]
  16. ZYPREXA [Concomitant]

REACTIONS (2)
  - LEUKOPENIA [None]
  - THROMBOCYTOPENIA [None]
